FAERS Safety Report 7394363-5 (Version None)
Quarter: 2011Q2

REPORT INFORMATION
  Report Type: 
  Country: None (occurrence: None)
  Receive Date: 20110405
  Receipt Date: 20110323
  Transmission Date: 20111010
  Serious: Yes (Death)
  Sender: FDA-Public Use
  Company Number: CN-ROCHE-767361

PATIENT
  Sex: Male

DRUGS (3)
  1. CYCLOSPORINE [Concomitant]
     Indication: RENAL TRANSPLANT
     Dosage: THE DRUG'S BRAND NAME WAS XIN SAI SI PING
     Route: 048
     Dates: start: 20020102
  2. STEROID NOS [Concomitant]
     Indication: RENAL TRANSPLANT
     Route: 048
     Dates: start: 20020102
  3. MYCOPHENOLATE MOFETIL [Suspect]
     Indication: RENAL TRANSPLANT
     Dosage: 1G FOR ONE TIME, 1.25G FOR ANOTHER TIME
     Route: 048
     Dates: start: 20020102

REACTIONS (2)
  - LUNG INFECTION [None]
  - RENAL FAILURE [None]
